FAERS Safety Report 20037686 (Version 2)
Quarter: 2022Q1

REPORT INFORMATION
  Report Type: Spontaneous
  Country: US (occurrence: US)
  Receive Date: 20211105
  Receipt Date: 20220214
  Transmission Date: 20220423
  Serious: Yes (Other)
  Sender: FDA-Public Use
  Company Number: US-HORIZON THERAPEUTICS-HZN-2021-007804

PATIENT

DRUGS (1)
  1. TEPEZZA [Suspect]
     Active Substance: TEPROTUMUMAB-TRBW
     Indication: Product used for unknown indication
     Dosage: HAD FULL TEPEZZA TREATMENTS IN EARLY 2020
     Route: 065
     Dates: start: 2020, end: 2020

REACTIONS (2)
  - Eye disorder [Unknown]
  - Alopecia [Not Recovered/Not Resolved]
